FAERS Safety Report 8933924 (Version 1)
Quarter: 2012Q4

REPORT INFORMATION
  Report Type: 
  Country: DE (occurrence: DE)
  Receive Date: 20121129
  Receipt Date: 20121129
  Transmission Date: 20130627
  Serious: Yes (Other)
  Sender: FDA-Public Use
  Company Number: DE-PFIZER INC-2012295770

PATIENT
  Sex: Male
  Weight: 87 kg

DRUGS (4)
  1. ATORVASTATIN CALCIUM [Suspect]
     Dosage: 10 mg, 1x/day
     Route: 048
     Dates: start: 20120518, end: 20120917
  2. LOSARTAN [Concomitant]
     Indication: HYPERTENSION
     Dosage: 25 mg, UNK
     Route: 048
  3. NEBIVOLOL [Concomitant]
     Indication: HYPERTENSION
     Dosage: 5 mg, UNK
     Route: 049
  4. ASS [Concomitant]
     Indication: CORONARY DISEASE
     Dosage: 100 mg, UNK

REACTIONS (2)
  - Musculoskeletal discomfort [Recovered/Resolved]
  - Diarrhoea [Recovered/Resolved]
